FAERS Safety Report 5088688-6 (Version None)
Quarter: 2006Q3

REPORT INFORMATION
  Report Type: 
  Country: None (occurrence: None)
  Receive Date: 20060822
  Receipt Date: 20060720
  Transmission Date: 20061208
  Serious: Yes (Hospitalization)
  Sender: FDA-Public Use
  Company Number: F03200600167

PATIENT
  Age: 54 Year
  Sex: Male
  Weight: 71 kg

DRUGS (4)
  1. OXALIPLATIN [Suspect]
     Indication: COLORECTAL CANCER
     Dosage: 320 MG Q2W - INTRAVENOUS NOS
     Route: 042
     Dates: start: 20060509, end: 20060509
  2. FLUOROURACIL [Suspect]
     Indication: COLORECTAL CANCER
     Dosage: 10528 MG Q2W - INTRAVENOUS NOS
     Route: 042
     Dates: start: 20060509, end: 20060509
  3. LEUCOVORIN CALCIUM [Suspect]
     Indication: COLORECTAL CANCER
     Dosage: 1504 MG Q2W - INTRAVENOUS
     Route: 042
     Dates: start: 20060509, end: 20060509
  4. BEVACIZUMAB - SOLUTION [Suspect]
     Indication: COLORECTAL CANCER
     Dosage: 726 MG Q2W - INTRAVENOUS NOS
     Route: 042
     Dates: start: 20060509, end: 20060509

REACTIONS (5)
  - BODY TEMPERATURE INCREASED [None]
  - DEVICE MIGRATION [None]
  - INTESTINAL PERFORATION [None]
  - RECTAL PERFORATION [None]
  - WHITE BLOOD CELL COUNT INCREASED [None]
